FAERS Safety Report 6232470-0 (Version None)
Quarter: 2009Q2

REPORT INFORMATION
  Report Type: 
  Country: None (occurrence: None)
  Receive Date: 20090617
  Receipt Date: 20090611
  Transmission Date: 20091009
  Serious: Yes (Hospitalization)
  Sender: FDA-Public Use
  Company Number: CH-B.I. PHARMACEUTICALS,INC./RIDGEFIELD-2009-DE-04132DE

PATIENT
  Sex: Male

DRUGS (8)
  1. DABIGATRAN [Suspect]
     Indication: CEREBROVASCULAR ACCIDENT PROPHYLAXIS
     Dosage: STRENGTH: 110 MG OR 150 MG
     Route: 048
  2. DABIGATRAN [Suspect]
     Indication: ATRIAL FIBRILLATION
  3. CORDARONE [Concomitant]
     Indication: ATRIAL FIBRILLATION
     Route: 048
  4. OLMETEC [Concomitant]
     Indication: ATRIAL FIBRILLATION
     Dosage: 1/2 TABLET
     Route: 048
  5. BISOPROLOL FUMARATE [Concomitant]
     Indication: ATRIAL FIBRILLATION
     Route: 048
  6. SORBIG [Concomitant]
     Indication: HYPERCHOLESTEROLAEMIA
     Route: 048
  7. ACIDUM FOLICUM [Concomitant]
     Indication: VITAMIN SUPPLEMENTATION
     Route: 048
  8. ACIDUM FOLICUM [Concomitant]
     Indication: FOLATE DEFICIENCY

REACTIONS (2)
  - ANAPHYLACTIC REACTION [None]
  - ARTHROPOD STING [None]
